FAERS Safety Report 22772685 (Version 2)
Quarter: 2024Q1

REPORT INFORMATION
  Report Type: Spontaneous
  Country: US (occurrence: US)
  Receive Date: 20230801
  Receipt Date: 20240110
  Transmission Date: 20240410
  Serious: Yes (Other)
  Sender: FDA-Public Use
  Company Number: US-ELI_LILLY_AND_COMPANY-US202307016369

PATIENT
  Age: 76 Year
  Sex: Female
  Weight: 88 kg

DRUGS (3)
  1. TRULICITY [Suspect]
     Active Substance: DULAGLUTIDE
     Indication: Product used for unknown indication
     Dosage: 3 MG, UNKNOWN
     Route: 065
  2. TRULICITY [Suspect]
     Active Substance: DULAGLUTIDE
     Indication: Product used for unknown indication
     Dosage: 4.5 MG, WEEKLY (1/W)
     Route: 058
     Dates: start: 202306
  3. TRULICITY [Suspect]
     Active Substance: DULAGLUTIDE
     Dosage: 3 MG, UNKNOWN
     Route: 065

REACTIONS (8)
  - Rash [Recovered/Resolved]
  - Pruritus [Recovered/Resolved]
  - Feeding disorder [Unknown]
  - Weight decreased [Unknown]
  - Pyrexia [Unknown]
  - Fatigue [Unknown]
  - Illness [Unknown]
  - Constipation [Unknown]

NARRATIVE: CASE EVENT DATE: 20230601
